FAERS Safety Report 6594509-2 (Version None)
Quarter: 2010Q1

REPORT INFORMATION
  Report Type: 
  Country: None (occurrence: None)
  Receive Date: 20100222
  Receipt Date: 20100216
  Transmission Date: 20100710
  Serious: Yes (Life-Threatening)
  Sender: FDA-Public Use
  Company Number: US-RB-002789-10

PATIENT
  Age: 56 Year
  Sex: Male

DRUGS (1)
  1. SUBOXONE [Suspect]
     Indication: ACCIDENTAL EXPOSURE
     Dosage: DOSING DETAILS UNKNOWN
     Route: 065
     Dates: start: 20100212, end: 20100214

REACTIONS (3)
  - RESPIRATORY RATE DECREASED [None]
  - SOMNOLENCE [None]
  - WRONG DRUG ADMINISTERED [None]
